FAERS Safety Report 9870655 (Version 2)
Quarter: 2014Q1

REPORT INFORMATION
  Report Type: Spontaneous
  Country: PE (occurrence: PE)
  Receive Date: 20140205
  Receipt Date: 20140304
  Transmission Date: 20141002
  Serious: Yes (Death)
  Sender: FDA-Public Use
  Company Number: PE-PFIZER INC-2014031728

PATIENT
  Age: 87 Year
  Sex: Female

DRUGS (4)
  1. NORVASC [Suspect]
     Indication: HYPERTENSION
     Dosage: 10 MG, 1X/DAY
     Route: 048
     Dates: start: 2006
  2. LANTUS [Concomitant]
     Indication: DIABETES MELLITUS
     Route: 058
  3. LASIX [Concomitant]
     Route: 048
  4. GLUCERNA [Concomitant]
     Route: 048

REACTIONS (1)
  - Respiratory tract infection [Fatal]
